FAERS Safety Report 22126060 (Version 1)
Quarter: 2023Q1

REPORT INFORMATION
  Report Type: Spontaneous
  Country: US (occurrence: US)
  Receive Date: 20230322
  Receipt Date: 20230322
  Transmission Date: 20230417
  Serious: No
  Sender: FDA-Public Use
  Company Number: US-ALLERGAN-2230103US

PATIENT
  Weight: 54.43 kg

DRUGS (1)
  1. LATISSE [Suspect]
     Active Substance: BIMATOPROST
     Indication: Skin wrinkling
     Dosage: UNK UNK, QHS
     Dates: start: 2019, end: 20220829

REACTIONS (4)
  - Scleral pigmentation [Not Recovered/Not Resolved]
  - Skin hyperpigmentation [Not Recovered/Not Resolved]
  - Blepharal pigmentation [Not Recovered/Not Resolved]
  - Eyelid skin dryness [Not Recovered/Not Resolved]
